FAERS Safety Report 13097100 (Version 1)
Quarter: 2017Q1

REPORT INFORMATION
  Report Type: Spontaneous
  Country: US (occurrence: US)
  Receive Date: 20170109
  Receipt Date: 20170109
  Transmission Date: 20170428
  Serious: No
  Sender: FDA-Public Use
  Company Number: US-ELI_LILLY_AND_COMPANY-US201701001781

PATIENT

DRUGS (8)
  1. PROCHLORPERAZIN [Suspect]
     Active Substance: PROCHLORPERAZINE
     Indication: INFECTION
  2. CYMBALTA [Suspect]
     Active Substance: DULOXETINE HYDROCHLORIDE
     Indication: PAIN
     Dosage: UNK, UNKNOWN
     Route: 048
  3. TRAMADOL. [Suspect]
     Active Substance: TRAMADOL
     Indication: PAIN
     Dosage: UNK, UNKNOWN
     Route: 048
  4. TRAMADOL. [Suspect]
     Active Substance: TRAMADOL
     Indication: INFECTION
  5. PROCHLORPERAZIN [Suspect]
     Active Substance: PROCHLORPERAZINE
     Indication: PAIN
     Dosage: UNK, UNKNOWN
     Route: 048
  6. GABAPENTIN. [Suspect]
     Active Substance: GABAPENTIN
     Indication: INFECTION
  7. CYMBALTA [Suspect]
     Active Substance: DULOXETINE HYDROCHLORIDE
     Indication: INFECTION
  8. GABAPENTIN. [Suspect]
     Active Substance: GABAPENTIN
     Indication: PAIN
     Dosage: UNK, UNKNOWN
     Route: 048

REACTIONS (3)
  - Swollen tongue [Unknown]
  - Muscle spasms [Unknown]
  - Nightmare [Unknown]
